FAERS Safety Report 4786603-3 (Version None)
Quarter: 2005Q3

REPORT INFORMATION
  Report Type: 
  Country: None (occurrence: None)
  Receive Date: 20050927
  Receipt Date: 20050627
  Transmission Date: 20060218
  Serious: No
  Sender: FDA-Public Use
  Company Number: USA0506101424

PATIENT
  Age: 17 Year
  Sex: Male

DRUGS (3)
  1. STRATTERA [Suspect]
     Dosage: 80 MG DAY
  2. RISPERDAL [Concomitant]
  3. RANITIDINE [Concomitant]

REACTIONS (2)
  - IMPRISONMENT [None]
  - URINE AMPHETAMINE POSITIVE [None]
